FAERS Safety Report 19855044 (Version 1)
Quarter: 2021Q3

REPORT INFORMATION
  Report Type: Other
  Country: US (occurrence: US)
  Receive Date: 20210920
  Receipt Date: 20210920
  Transmission Date: 20211014
  Serious: Yes (Hospitalization)
  Sender: FDA-Public Use
  Company Number: US-ROCHE-2907000

PATIENT
  Age: 63 Year
  Sex: Male

DRUGS (1)
  1. OCREVUS [Suspect]
     Active Substance: OCRELIZUMAB
     Indication: PRIMARY PROGRESSIVE MULTIPLE SCLEROSIS
     Dosage: ONGOING NO?DATE OF TREATMENT: 21/NOV/2018, 05/DEC/2018, 18/NOV/2019, 15/JUN/2020, 15/JUL/2020.
     Route: 042
     Dates: start: 20190531, end: 20210115

REACTIONS (2)
  - Off label use [Unknown]
  - Device related infection [Not Recovered/Not Resolved]

NARRATIVE: CASE EVENT DATE: 20210830
